APPROVED DRUG PRODUCT: METHADOSE
Active Ingredient: METHADONE HYDROCHLORIDE
Strength: 40MG
Dosage Form/Route: TABLET, FOR SUSPENSION;ORAL
Application: A074184 | Product #001 | TE Code: AA
Applicant: SPECGX LLC
Approved: Apr 29, 1993 | RLD: No | RS: No | Type: RX